FAERS Safety Report 5498389-8 (Version None)
Quarter: 2007Q4

REPORT INFORMATION
  Report Type: 
  Country: None (occurrence: None)
  Receive Date: 20071025
  Receipt Date: 20071022
  Transmission Date: 20080405
  Serious: Yes (Disabling)
  Sender: FDA-Public Use
  Company Number: US-MERCK-0706USA03926

PATIENT
  Sex: Female
  Weight: 70 kg

DRUGS (8)
  1. ZETIA [Suspect]
     Indication: BLOOD CHOLESTEROL INCREASED
     Route: 048
     Dates: start: 20040101, end: 20070914
  2. LASIX [Concomitant]
     Route: 048
  3. LEVOTHYROXINE SODIUM [Concomitant]
     Route: 048
  4. FOSAMAX [Concomitant]
     Route: 048
  5. ENALAPRIL MALEATE [Concomitant]
     Route: 048
  6. AMARYL [Concomitant]
     Route: 048
  7. ELAVIL [Concomitant]
     Route: 048
  8. SULAR [Concomitant]
     Route: 048

REACTIONS (2)
  - MUSCLE SPASMS [None]
  - MYALGIA [None]
